FAERS Safety Report 4927146-3 (Version None)
Quarter: 2006Q1

REPORT INFORMATION
  Report Type: 
  Country: None (occurrence: None)
  Receive Date: 20060228
  Receipt Date: 20060221
  Transmission Date: 20060701
  Serious: Yes (Death, Other)
  Sender: FDA-Public Use
  Company Number: IT-JNJFOC-20060203570

PATIENT
  Age: 48 Year
  Sex: Male

DRUGS (6)
  1. INFLIXIMAB [Suspect]
     Dosage: AT WEEKS 0, 2, 6 WEEKS
     Route: 042
  2. INFLIXIMAB [Suspect]
     Dosage: AT WEEKS 0, 2, 6 WEEKS
     Route: 042
  3. INFLIXIMAB [Suspect]
     Indication: CROHN'S DISEASE
     Dosage: AT WEEKS 0, 2, 6 WEEKS
     Route: 042
  4. AZATHIOPRINE [Concomitant]
     Indication: CROHN'S DISEASE
     Dosage: 5 MONTHS DURATION
  5. METRONIDAZOLE [Concomitant]
  6. MESALAMINE [Concomitant]

REACTIONS (1)
  - BILE DUCT CANCER [None]
